FAERS Safety Report 8054969-7 (Version None)
Quarter: 2012Q1

REPORT INFORMATION
  Report Type: 
  Country: None (occurrence: None)
  Receive Date: 20120119
  Receipt Date: 20120111
  Transmission Date: 20120608
  Serious: Yes (Other)
  Sender: FDA-Public Use
  Company Number: US-PFIZER INC-2012008662

PATIENT
  Sex: Female
  Weight: 56.689 kg

DRUGS (4)
  1. EFFEXOR XR [Suspect]
     Indication: ANXIETY
  2. EFFEXOR XR [Suspect]
     Indication: DEPRESSION
     Dosage: 75 MG, 2X/DAY
     Route: 048
     Dates: start: 20070101
  3. NEXIUM [Concomitant]
     Indication: BLOOD PRESSURE MANAGEMENT
     Dosage: TWO TIMES A DAY
  4. AMLODIPINE [Concomitant]
     Indication: BLOOD PRESSURE MANAGEMENT
     Dosage: DAILY

REACTIONS (8)
  - TONGUE PARALYSIS [None]
  - FATIGUE [None]
  - BREAST CANCER STAGE IV [None]
  - CHOKING [None]
  - DYSPHAGIA [None]
  - VOCAL CORD PARALYSIS [None]
  - COUGH [None]
  - ASTHENIA [None]
